FAERS Safety Report 12474141 (Version 1)
Quarter: 2016Q2

REPORT INFORMATION
  Report Type: Spontaneous
  Country: CA (occurrence: CA)
  Receive Date: 20160616
  Receipt Date: 20160616
  Transmission Date: 20160815
  Serious: Yes (Other)
  Sender: FDA-Public Use
  Company Number: CA-ASTRAZENECA-2016SE64250

PATIENT
  Age: 78 Year
  Sex: Female

DRUGS (11)
  1. ONGLYZA [Suspect]
     Active Substance: SAXAGLIPTIN HYDROCHLORIDE
     Indication: DIABETES MELLITUS
     Route: 048
  2. MSM [Concomitant]
     Active Substance: DIMETHYL SULFONE
  3. PROBIOTIC [Concomitant]
     Active Substance: PROBIOTICS NOS
  4. SANDOZ BISOPROLOL [Concomitant]
  5. APO-FUROSEMIDE [Concomitant]
     Active Substance: FUROSEMIDE
  6. GLUCOSAMINE [Concomitant]
     Active Substance: GLUCOSAMINE
  7. METFORMIN [Concomitant]
     Active Substance: METFORMIN HYDROCHLORIDE
  8. AMLODIPINE [Concomitant]
     Active Substance: AMLODIPINE BESYLATE
  9. CHONDROITIN [Concomitant]
     Active Substance: CHONDROITIN
  10. LOSARTAN. [Concomitant]
     Active Substance: LOSARTAN
  11. RANITIDINE. [Concomitant]
     Active Substance: RANITIDINE

REACTIONS (3)
  - Urticaria [Not Recovered/Not Resolved]
  - Immune system disorder [Not Recovered/Not Resolved]
  - White blood cell count abnormal [Not Recovered/Not Resolved]
